FAERS Safety Report 4782489-1 (Version None)
Quarter: 2005Q3

REPORT INFORMATION
  Report Type: 
  Country: None (occurrence: None)
  Receive Date: 20050929
  Receipt Date: 20041223
  Transmission Date: 20060218
  Serious: No
  Sender: FDA-Public Use
  Company Number: 393077

PATIENT
  Sex: Male

DRUGS (3)
  1. COREG [Suspect]
     Dosage: 25MG TWICE PER DAY
     Route: 048
     Dates: start: 20040401
  2. CRESTOR [Concomitant]
  3. NEXIUM [Concomitant]

REACTIONS (1)
  - STOMACH DISCOMFORT [None]
